FAERS Safety Report 7866297-0 (Version None)
Quarter: 2011Q4

REPORT INFORMATION
  Report Type: 
  Country: None (occurrence: None)
  Receive Date: 20111028
  Receipt Date: 20110526
  Transmission Date: 20120403
  Serious: No
  Sender: FDA-Public Use
  Company Number: US-GLAXOSMITHKLINE-A0929309A

PATIENT
  Age: 61 Year
  Sex: Male

DRUGS (12)
  1. MELOXICAM [Concomitant]
  2. NEURONTIN [Concomitant]
  3. OMEPRAZOLE [Concomitant]
  4. AMLODIPINE [Concomitant]
  5. LEVITRA [Concomitant]
  6. CLONAZEPAM [Concomitant]
  7. PROPRANOLOL [Concomitant]
  8. LITHIUM CARBONATE [Concomitant]
  9. ADVAIR DISKUS 100/50 [Suspect]
     Indication: CHRONIC OBSTRUCTIVE PULMONARY DISEASE
     Dosage: 1PUFF TWICE PER DAY
     Route: 055
     Dates: start: 20101001
  10. BENICAR [Concomitant]
  11. NEFAZODONE HCL [Concomitant]
  12. FLEXERIL [Concomitant]

REACTIONS (2)
  - INCREASED UPPER AIRWAY SECRETION [None]
  - PRODUCT QUALITY ISSUE [None]
